FAERS Safety Report 8898992 (Version 2)
Quarter: 2013Q1

REPORT INFORMATION
  Report Type: Spontaneous
  Country: GB (occurrence: GB)
  Receive Date: 20121109
  Receipt Date: 20130111
  Transmission Date: 20140127
  Serious: Yes (Other)
  Sender: FDA-Public Use
  Company Number: GB-ELI_LILLY_AND_COMPANY-GB201211001098

PATIENT
  Sex: Male

DRUGS (2)
  1. CIALIS [Suspect]
     Indication: ERECTILE DYSFUNCTION
     Dosage: 10 MG, QD
  2. CIALIS [Suspect]
     Dosage: 5 MG, QD

REACTIONS (4)
  - Subdural haemorrhage [Unknown]
  - Fall [Recovered/Resolved]
  - Pain [Not Recovered/Not Resolved]
  - Headache [Unknown]
